FAERS Safety Report 24354623 (Version 6)
Quarter: 2025Q1

REPORT INFORMATION
  Report Type: Spontaneous
  Country: US (occurrence: US)
  Receive Date: 20240923
  Receipt Date: 20250318
  Transmission Date: 20250408
  Serious: No
  Sender: PHARMING GROUP
  Company Number: US-PHARMING-PHAUS2024000824

PATIENT

DRUGS (7)
  1. RUCONEST [Suspect]
     Active Substance: CONESTAT ALFA
     Indication: Hereditary angioedema
     Route: 042
     Dates: start: 202301
  2. RUCONEST [Suspect]
     Active Substance: CONESTAT ALFA
     Route: 042
     Dates: start: 202301
  3. RUCONEST [Suspect]
     Active Substance: CONESTAT ALFA
     Route: 042
     Dates: start: 202301
  4. RUCONEST [Suspect]
     Active Substance: CONESTAT ALFA
     Route: 042
     Dates: start: 202301
  5. RUCONEST [Suspect]
     Active Substance: CONESTAT ALFA
     Route: 042
     Dates: start: 202301
  6. RUCONEST [Suspect]
     Active Substance: CONESTAT ALFA
     Route: 042
     Dates: start: 202301
  7. EPINEPHRINE [Concomitant]
     Active Substance: EPINEPHRINE
     Indication: Product used for unknown indication

REACTIONS (3)
  - Maternal exposure during pregnancy [Unknown]
  - Maternal exposure during breast feeding [Unknown]
  - Underdose [Unknown]
